FAERS Safety Report 17727968 (Version 1)
Quarter: 2020Q2

REPORT INFORMATION
  Report Type: Spontaneous
  Country: US (occurrence: US)
  Receive Date: 20200429
  Receipt Date: 20200429
  Transmission Date: 20200714
  Serious: Yes (Death)
  Sender: FDA-Public Use
  Company Number: None

PATIENT
  Age: 89 Year
  Sex: Female

DRUGS (5)
  1. DIPHENHYDRAMINE 50 MG/ML VIAL [Concomitant]
  2. DEXAMETHASONE 20 MG/5 ML VIAL [Concomitant]
  3. EMPLICITI [Suspect]
     Active Substance: ELOTUZUMAB
  4. KYPROLIS [Suspect]
     Active Substance: CARFILZOMIB
  5. PROCRIT [Concomitant]
     Active Substance: ERYTHROPOIETIN

REACTIONS (1)
  - Death [None]

NARRATIVE: CASE EVENT DATE: 20200428
